FAERS Safety Report 10894878 (Version 2)
Quarter: 2015Q3

REPORT INFORMATION
  Report Type: Spontaneous
  Country: US (occurrence: US)
  Receive Date: 20150306
  Receipt Date: 20150727
  Transmission Date: 20151125
  Serious: No
  Sender: FDA-Public Use
  Company Number: US-GLAXOSMITHKLINE-US2015020221

PATIENT
  Age: 28 Year
  Sex: Female

DRUGS (1)
  1. AVODART [Suspect]
     Active Substance: DUTASTERIDE
     Indication: ILL-DEFINED DISORDER
     Dosage: UNK, Z
     Route: 062
     Dates: start: 2014

REACTIONS (3)
  - Exposure during pregnancy [Unknown]
  - Accidental exposure to product [Unknown]
  - Live birth [Unknown]

NARRATIVE: CASE EVENT DATE: 20150422
